FAERS Safety Report 25740254 (Version 4)
Quarter: 2025Q4

REPORT INFORMATION
  Report Type: Spontaneous
  Country: EU (occurrence: EU)
  Receive Date: 20250829
  Receipt Date: 20251202
  Transmission Date: 20260118
  Serious: Yes (Life-Threatening, Other)
  Sender: NOVARTIS
  Company Number: EU-002147023-NVSC2025FR132839

PATIENT
  Sex: Female
  Weight: 86 kg

DRUGS (3)
  1. OCTREOTIDE ACETATE [Suspect]
     Active Substance: OCTREOTIDE ACETATE
     Indication: Neuroendocrine tumour
     Dosage: 30 MG, QMO (SLOW RELEASE  FORMULATION FOR INJECTION, 1 INJECTION PER MONTH)
     Route: 065
     Dates: start: 2015
  2. OCTREOTIDE ACETATE [Suspect]
     Active Substance: OCTREOTIDE ACETATE
     Dosage: 30 MG, QMO (SLOW RELEASE FORMULATION FOR INJECTION, 1 INJECTION PER MONTH)
     Route: 065
  3. OCTREOTIDE ACETATE [Suspect]
     Active Substance: OCTREOTIDE ACETATE

REACTIONS (7)
  - Aortic dissection [Unknown]
  - Product dose omission issue [Unknown]
  - Needle issue [Unknown]
  - Device use issue [Unknown]
  - Inappropriate schedule of product administration [Unknown]
  - Product availability issue [Unknown]
  - Product solubility abnormal [Unknown]

NARRATIVE: CASE EVENT DATE: 20241101
